FAERS Safety Report 24893485 (Version 3)
Quarter: 2025Q1

REPORT INFORMATION
  Report Type: Report from Study
  Country: US (occurrence: US)
  Receive Date: 20250128
  Receipt Date: 20250306
  Transmission Date: 20250408
  Serious: No
  Sender: ACADIA PHARMACEUTICALS
  Company Number: US-ACADIA PHARMACEUTICALS INC.-ACA-2025-TRF-000328

PATIENT
  Sex: Female

DRUGS (4)
  1. DAYBUE [Suspect]
     Active Substance: TROFINETIDE
     Indication: Rett syndrome
     Dosage: 25 MILLILITER, BID
     Route: 048
     Dates: end: 20250109
  2. DAYBUE [Suspect]
     Active Substance: TROFINETIDE
     Dosage: 2 MILLILITER, QD
     Route: 065
  3. DAYBUE [Suspect]
     Active Substance: TROFINETIDE
     Dosage: 25 MILLILITER, BID
     Route: 048
  4. DAYBUE [Suspect]
     Active Substance: TROFINETIDE
     Dosage: 5 MILLILITER, BID
     Route: 065

REACTIONS (8)
  - Menstrual discomfort [Unknown]
  - Screaming [Not Recovered/Not Resolved]
  - Insomnia [Not Recovered/Not Resolved]
  - Mood swings [Not Recovered/Not Resolved]
  - Abnormal behaviour [Not Recovered/Not Resolved]
  - Crying [Not Recovered/Not Resolved]
  - Depressed mood [Not Recovered/Not Resolved]
  - Underdose [Unknown]
